FAERS Safety Report 12601197 (Version 1)
Quarter: 2016Q3

REPORT INFORMATION
  Report Type: Report from Study
  Country: FR (occurrence: FR)
  Receive Date: 20160728
  Receipt Date: 20160728
  Transmission Date: 20161109
  Serious: Yes (Other)
  Sender: FDA-Public Use
  Company Number: FR-ROCHE-1802191

PATIENT
  Sex: Female
  Weight: 67 kg

DRUGS (1)
  1. VEMURAFENIB [Suspect]
     Active Substance: VEMURAFENIB
     Indication: NEOPLASM MALIGNANT
     Route: 048
     Dates: start: 20150806, end: 20160112

REACTIONS (1)
  - Paget^s disease of nipple [Not Recovered/Not Resolved]

NARRATIVE: CASE EVENT DATE: 20160705
